FAERS Safety Report 13463777 (Version 1)
Quarter: 2017Q2

REPORT INFORMATION
  Report Type: Spontaneous
  Country: US (occurrence: US)
  Receive Date: 20170420
  Receipt Date: 20170420
  Transmission Date: 20170830
  Serious: Yes (Other)
  Sender: FDA-Public Use
  Company Number: US-ROCHE-662544

PATIENT
  Age: 15 Year
  Sex: Male
  Weight: 290 kg

DRUGS (4)
  1. ACCUTANE [Suspect]
     Active Substance: ISOTRETINOIN
     Indication: ACNE
     Route: 048
  2. ACCUTANE [Suspect]
     Active Substance: ISOTRETINOIN
     Dosage: DOSE: 40 MG ALTERNATING WITH 20 MG EVERY OTHER DAY
     Route: 048
  3. ACCUTANE [Suspect]
     Active Substance: ISOTRETINOIN
     Dosage: DOSE: 40 MG ALTERNATING WITH 20 MG EVERY OTHER DAY
     Route: 048
     Dates: start: 19990322, end: 19990403
  4. ACCUTANE [Suspect]
     Active Substance: ISOTRETINOIN
     Dosage: DOSE DECREASED
     Route: 048

REACTIONS (7)
  - Xerosis [Unknown]
  - Inflammatory bowel disease [Unknown]
  - Dry skin [Unknown]
  - Colitis ulcerative [Unknown]
  - Rash pustular [Unknown]
  - Skin exfoliation [Unknown]
  - Night blindness [Unknown]

NARRATIVE: CASE EVENT DATE: 199902
